FAERS Safety Report 25063073 (Version 1)
Quarter: 2025Q1

REPORT INFORMATION
  Report Type: Spontaneous
  Country: US (occurrence: US)
  Receive Date: 20250311
  Receipt Date: 20250311
  Transmission Date: 20250408
  Serious: Yes (Life-Threatening, Hospitalization, Other)
  Sender: RANBAXY
  Company Number: US-SUN PHARMACEUTICAL INDUSTRIES LTD-2025R1-497899

PATIENT
  Age: 3 Decade
  Sex: Female

DRUGS (3)
  1. CALCIUM GLUCONATE [Suspect]
     Active Substance: CALCIUM GLUCONATE
     Indication: Narcolepsy
     Route: 065
  2. SODIUM CHLORIDE [Suspect]
     Active Substance: SODIUM CHLORIDE
     Indication: Narcolepsy
     Route: 065
  3. NALOXONE [Suspect]
     Active Substance: NALOXONE
     Indication: Narcolepsy
     Route: 065

REACTIONS (1)
  - Drug ineffective [Unknown]
